FAERS Safety Report 5971321-6 (Version None)
Quarter: 2008Q4

REPORT INFORMATION
  Report Type: 
  Country: None (occurrence: None)
  Receive Date: 20081128
  Receipt Date: 20081117
  Transmission Date: 20090506
  Serious: Yes (Other)
  Sender: FDA-Public Use
  Company Number: JP-PFIZER INC-2008099957

PATIENT
  Age: 60 Year
  Sex: Male

DRUGS (1)
  1. LOMEFLOXACIN HYDROCHLORIDE TABLET [Suspect]
     Route: 048
     Dates: start: 20041201, end: 20071001

REACTIONS (1)
  - ACUTE GENERALISED EXANTHEMATOUS PUSTULOSIS [None]
